FAERS Safety Report 9734715 (Version 2)
Quarter: 2013Q4

REPORT INFORMATION
  Report Type: Spontaneous
  Country: GB (occurrence: GB)
  Receive Date: 20131206
  Receipt Date: 20131218
  Transmission Date: 20140711
  Serious: Yes (Other)
  Sender: FDA-Public Use
  Company Number: GB-BAYER-2013-147815

PATIENT
  Age: 57 Year
  Sex: Female
  Weight: 65 kg

DRUGS (2)
  1. MIRENA [Suspect]
     Dosage: DAILY DOSE 20 ?G
     Dates: start: 2003
  2. CLONIDINE [Concomitant]
     Indication: HOT FLUSH

REACTIONS (4)
  - Invasive ductal breast carcinoma [Not Recovered/Not Resolved]
  - Device misuse [None]
  - Off label use [None]
  - Device difficult to use [None]
